FAERS Safety Report 5277538-0 (Version None)
Quarter: 2007Q1

REPORT INFORMATION
  Report Type: 
  Country: None (occurrence: None)
  Receive Date: 20070327
  Receipt Date: 20070326
  Transmission Date: 20070707
  Serious: Yes (Hospitalization)
  Sender: FDA-Public Use
  Company Number: GB-BRISTOL-MYERS SQUIBB COMPANY-13726559

PATIENT
  Sex: Female

DRUGS (1)
  1. SINEMET CR [Suspect]
     Dates: start: 20061203

REACTIONS (2)
  - EPISTAXIS [None]
  - PULMONARY THROMBOSIS [None]
